FAERS Safety Report 4974100-1 (Version None)
Quarter: 2006Q1

REPORT INFORMATION
  Report Type: 
  Country: None (occurrence: None)
  Receive Date: 20060130
  Receipt Date: 20051210
  Transmission Date: 20060701
  Serious: No
  Sender: FDA-Public Use
  Company Number: COT_0339_2005

PATIENT
  Sex: Female

DRUGS (1)
  1. VENTAVIS [Suspect]
     Dates: start: 20051207

REACTIONS (3)
  - CHILLS [None]
  - NAUSEA [None]
  - VOMITING [None]
